FAERS Safety Report 5171129-8 (Version None)
Quarter: 2006Q4

REPORT INFORMATION
  Report Type: 
  Country: None (occurrence: None)
  Receive Date: 20061213
  Receipt Date: 20060711
  Transmission Date: 20070319
  Serious: Yes (Other)
  Sender: FDA-Public Use
  Company Number: US-GLAXOSMITHKLINE-A0612469A

PATIENT
  Sex: Male

DRUGS (1)
  1. VIVARIN [Suspect]
     Indication: HYPERVIGILANCE
     Dates: start: 20060127

REACTIONS (4)
  - BLOOD PRESSURE IMMEASURABLE [None]
  - HEART RATE INCREASED [None]
  - LOSS OF CONSCIOUSNESS [None]
  - ROAD TRAFFIC ACCIDENT [None]
